FAERS Safety Report 15974754 (Version 3)
Quarter: 2019Q1

REPORT INFORMATION
  Report Type: Report from Study
  Country: DE (occurrence: DE)
  Receive Date: 20190218
  Receipt Date: 20190301
  Transmission Date: 20190418
  Serious: Yes (Disabling, Congenital Anomaly, Other)
  Sender: FDA-Public Use
  Company Number: DE-ACCORD-027187

PATIENT
  Age: 1 Day
  Sex: Female
  Weight: 2.79 kg

DRUGS (7)
  1. RAMIPRIL. [Suspect]
     Active Substance: RAMIPRIL
     Indication: HYPERTENSION
     Dosage: 5 MG, UNK EXPOSURE DURATION: 0-4+1 WEEKS
     Route: 064
     Dates: start: 20131019, end: 20131117
  2. LAMICTAL [Suspect]
     Active Substance: LAMOTRIGINE
     Indication: EPILEPSY
     Dosage: 1050 MG/D (BIS 600)
     Route: 064
     Dates: start: 20131019, end: 20140714
  3. HEPATITIS A VACCINE/HEPATITIS B VACCINE [Concomitant]
     Indication: IMMUNISATION
     Dosage: VACCINES HEPATITIS A AND HEPATITIS B
     Route: 064
  4. METHYLDOPA. [Suspect]
     Active Substance: METHYLDOPA
     Indication: HYPERTENSION
     Route: 064
     Dates: start: 20140210, end: 20140714
  5. METOPROLOL. [Suspect]
     Active Substance: METOPROLOL
     Indication: HYPERTENSION
     Route: 064
     Dates: start: 20131118, end: 20140209
  6. LAMOTRIGINE. [Suspect]
     Active Substance: LAMOTRIGINE
     Indication: PRODUCT USED FOR UNKNOWN INDICATION
  7. FOLIC ACID. [Concomitant]
     Active Substance: FOLIC ACID
     Indication: PROPHYLAXIS OF NEURAL TUBE DEFECT
     Dosage: 5 MG/D
     Route: 064
     Dates: start: 20140211, end: 20140211

REACTIONS (5)
  - Congenital choroid plexus cyst [Unknown]
  - Patent ductus arteriosus [Unknown]
  - Atrial septal defect [Unknown]
  - Ventricular septal defect [Unknown]
  - Foetal exposure during pregnancy [Unknown]

NARRATIVE: CASE EVENT DATE: 20140714
